FAERS Safety Report 7561070-5 (Version None)
Quarter: 2011Q2

REPORT INFORMATION
  Report Type: 
  Country: None (occurrence: None)
  Receive Date: 20110621
  Receipt Date: 20110613
  Transmission Date: 20111010
  Serious: Yes (Hospitalization)
  Sender: FDA-Public Use
  Company Number: TR-UCBSA-035293

PATIENT
  Age: 31 Year
  Sex: Male

DRUGS (3)
  1. KEPPRA [Suspect]
     Indication: CONVULSION
     Dates: start: 20110604
  2. OXCARBAZEPINE [Concomitant]
  3. OXCARBAZEPINE [Concomitant]
     Indication: CONVULSION

REACTIONS (2)
  - DELIRIUM [None]
  - HALLUCINATION [None]
